FAERS Safety Report 15577862 (Version 3)
Quarter: 2021Q1

REPORT INFORMATION
  Report Type: Spontaneous
  Country: US (occurrence: US)
  Receive Date: 20181102
  Receipt Date: 20210120
  Transmission Date: 20210419
  Serious: No
  Sender: FDA-Public Use
  Company Number: US-PFIZER INC-2018445493

PATIENT
  Age: 62 Year
  Sex: Female
  Weight: 62.14 kg

DRUGS (1)
  1. EFFEXOR XR [Suspect]
     Active Substance: VENLAFAXINE HYDROCHLORIDE
     Dosage: 37.5 MG, 3X/DAY;(QTY 90 DAY SUPPLY 30)

REACTIONS (3)
  - Crying [Unknown]
  - Somnolence [Unknown]
  - Head discomfort [Unknown]
